FAERS Safety Report 4517734-0 (Version None)
Quarter: 2004Q4

REPORT INFORMATION
  Report Type: 
  Country: None (occurrence: None)
  Receive Date: 20041130
  Receipt Date: 20041112
  Transmission Date: 20050328
  Serious: Yes (Hospitalization)
  Sender: FDA-Public Use
  Company Number: 207872

PATIENT
  Age: 57 Year
  Sex: Female
  Weight: 63.05 kg

DRUGS (1)
  1. AVONEX [Suspect]
     Indication: MULTIPLE SCLEROSIS
     Dosage: 30 UG; QW; IM
     Route: 030
     Dates: start: 19980127

REACTIONS (14)
  - ACCIDENTAL NEEDLE STICK [None]
  - ARTHRALGIA [None]
  - ARTHRITIS [None]
  - BLOOD PRESSURE INCREASED [None]
  - BODY HEIGHT DECREASED [None]
  - CONDITION AGGRAVATED [None]
  - CYSTITIS [None]
  - FALL [None]
  - GASTRIC ULCER HAEMORRHAGE [None]
  - HYPOTHYROIDISM [None]
  - INFLUENZA LIKE ILLNESS [None]
  - JOINT SWELLING [None]
  - SCOLIOSIS [None]
  - VISUAL DISTURBANCE [None]
